FAERS Safety Report 6411239-8 (Version None)
Quarter: 2009Q4

REPORT INFORMATION
  Report Type: 
  Country: None (occurrence: None)
  Receive Date: 20091020
  Receipt Date: 20091006
  Transmission Date: 20100525
  Serious: Yes (Death, Hospitalization)
  Sender: FDA-Public Use
  Company Number: RENA-1000397

PATIENT
  Age: 50 Year
  Sex: Male
  Weight: 49.3 kg

DRUGS (14)
  1. RENAGEL [Suspect]
     Indication: HYPERPHOSPHATAEMIA
     Dosage: SEE IMAGE
     Route: 048
     Dates: start: 20030707, end: 20030806
  2. RENAGEL [Suspect]
     Indication: HYPERPHOSPHATAEMIA
     Dosage: SEE IMAGE
     Route: 048
     Dates: start: 20030807, end: 20040211
  3. RENAGEL [Suspect]
     Indication: HYPERPHOSPHATAEMIA
     Dosage: SEE IMAGE
     Route: 048
     Dates: start: 20040212, end: 20040323
  4. RENAGEL [Suspect]
     Indication: HYPERPHOSPHATAEMIA
     Dosage: SEE IMAGE
     Route: 048
     Dates: start: 20040324, end: 20040912
  5. RENAGEL [Suspect]
     Indication: HYPERPHOSPHATAEMIA
     Dosage: SEE IMAGE
     Route: 048
     Dates: start: 20040913, end: 20051208
  6. RENAGEL [Suspect]
     Indication: HYPERPHOSPHATAEMIA
     Dosage: SEE IMAGE
     Route: 048
     Dates: start: 20051208, end: 20051229
  7. RENAGEL [Suspect]
     Indication: HYPERPHOSPHATAEMIA
     Dosage: SEE IMAGE
     Route: 048
     Dates: start: 20061005, end: 20080723
  8. RENAGEL [Suspect]
     Indication: HYPERPHOSPHATAEMIA
     Dosage: SEE IMAGE
     Route: 048
     Dates: start: 20080724, end: 20090209
  9. CALTAN (CALCIUM CARBONATE) [Concomitant]
  10. LANSOPRAZOLE [Concomitant]
  11. OLMETEC (OLMESARATN MEDOXOMIL) [Concomitant]
  12. CARVEDILOL [Concomitant]
  13. AMLODIPINE BESYLATE [Concomitant]
  14. PERINDOPRIL ERBUMINE [Concomitant]

REACTIONS (9)
  - ABDOMINAL INFECTION [None]
  - ATELECTASIS [None]
  - CONSTIPATION [None]
  - DIALYSIS [None]
  - ENDOTOXIC SHOCK [None]
  - INTESTINAL PERFORATION [None]
  - PLEURAL EFFUSION [None]
  - PNEUMONIA STAPHYLOCOCCAL [None]
  - SEPTIC SHOCK [None]
